FAERS Safety Report 5490793-7 (Version None)
Quarter: 2007Q4

REPORT INFORMATION
  Report Type: 
  Country: None (occurrence: None)
  Receive Date: 20071019
  Receipt Date: 20071008
  Transmission Date: 20080405
  Serious: Yes (Hospitalization)
  Sender: FDA-Public Use
  Company Number: GB-AMGEN-UK219625

PATIENT
  Sex: Male

DRUGS (21)
  1. PANITUMUMAB [Suspect]
     Indication: COLORECTAL CANCER
     Route: 042
     Dates: start: 20070115
  2. ALLOPURINOL [Concomitant]
     Route: 048
     Dates: start: 19970101
  3. WARFARIN SODIUM [Concomitant]
     Route: 048
     Dates: start: 20030101, end: 20070614
  4. ATORVASTATIN CALCIUM [Concomitant]
     Route: 048
     Dates: start: 19970101
  5. LISINOPRIL [Concomitant]
     Route: 048
     Dates: start: 20040101
  6. EPLERENONE [Concomitant]
     Route: 048
     Dates: start: 20050101
  7. PARACETAMOL [Concomitant]
     Route: 048
     Dates: start: 20070129
  8. DIHYDROCODEINE BITARTRATE INJ [Concomitant]
     Route: 048
     Dates: start: 20070129
  9. PIRITON [Concomitant]
     Route: 048
     Dates: start: 20070129, end: 20070215
  10. MINOCYCLINE HCL [Concomitant]
     Route: 048
     Dates: start: 20070129
  11. E45 [Concomitant]
     Route: 061
     Dates: start: 20070129
  12. DEXAMETHASONE 0.5MG TAB [Concomitant]
     Route: 042
     Dates: start: 20070115
  13. ONDANSETRON [Concomitant]
     Route: 042
     Dates: start: 20070115
  14. CIPROFLOXACIN [Concomitant]
     Route: 048
     Dates: start: 20070301, end: 20070301
  15. CODEINE [Concomitant]
     Route: 048
     Dates: start: 20070306, end: 20070307
  16. CLARITHROMYCIN [Concomitant]
     Route: 048
     Dates: start: 20070322
  17. IBUPROFEN [Concomitant]
     Dates: start: 20070322
  18. MAGNESIUM SULFATE [Concomitant]
     Route: 048
     Dates: start: 20070419
  19. CALCICHEW [Concomitant]
     Route: 048
     Dates: start: 20070517
  20. FLUCLOXACILLIN [Concomitant]
     Route: 048
     Dates: start: 20070517, end: 20070525
  21. AZITHROMYCIN [Concomitant]
     Route: 048
     Dates: start: 20070525, end: 20070530

REACTIONS (2)
  - CATHETER SITE RELATED REACTION [None]
  - URINARY TRACT INFECTION [None]
